FAERS Safety Report 5236783-0 (Version None)
Quarter: 2007Q1

REPORT INFORMATION
  Report Type: 
  Country: None (occurrence: None)
  Receive Date: 20070213
  Receipt Date: 20070129
  Transmission Date: 20070707
  Serious: Yes (Hospitalization)
  Sender: FDA-Public Use
  Company Number: US-BRISTOL-MYERS SQUIBB COMPANY-13660683

PATIENT
  Age: 75 Year
  Sex: Male

DRUGS (13)
  1. WARFARIN SODIUM [Suspect]
     Indication: AORTIC VALVE REPLACEMENT
     Dosage: 7.5 MG ON 4 DAYS/WEEK AND 5 MG ON 3 DAYS/WEEK
  2. ASPIRIN [Interacting]
  3. OMEGA 3 FATTY ACID [Interacting]
  4. GLIPIZIDE [Concomitant]
     Route: 048
  5. FUROSEMIDE [Concomitant]
     Route: 048
  6. POTASSIUM CHLORIDE [Concomitant]
     Route: 048
  7. METFORMIN HCL [Concomitant]
     Route: 048
  8. SIMVASTATIN [Concomitant]
     Route: 048
  9. LEVOTHYROXINE SODIUM [Concomitant]
     Route: 048
  10. RAMIPRIL [Concomitant]
     Route: 048
  11. LORAZEPAM [Concomitant]
  12. IPRATROPIUM BROMIDE [Concomitant]
  13. MIGLITOL [Concomitant]
     Route: 048

REACTIONS (6)
  - ACTIVATED PARTIAL THROMBOPLASTIN TIME PROLONGED [None]
  - CONVULSION [None]
  - DRUG INTERACTION [None]
  - FALL [None]
  - INTERNATIONAL NORMALISED RATIO INCREASED [None]
  - SUBDURAL HAEMATOMA [None]
